FAERS Safety Report 6347049-X (Version None)
Quarter: 2009Q3

REPORT INFORMATION
  Report Type: 
  Country: None (occurrence: None)
  Receive Date: 20090909
  Receipt Date: 20090909
  Transmission Date: 20100115
  Serious: No
  Sender: FDA-Public Use
  Company Number: None

PATIENT
  Age: 58 Year
  Sex: Female
  Weight: 86.1834 kg

DRUGS (1)
  1. BONIVA [Suspect]
     Indication: OSTEOPOROSIS
     Dosage: 150 1 X A MONTH PO
     Route: 048
     Dates: start: 20090901, end: 20090901

REACTIONS (6)
  - ABDOMINAL DISTENSION [None]
  - BONE PAIN [None]
  - CHILLS [None]
  - DYSPNOEA [None]
  - INSOMNIA [None]
  - PAIN [None]
